FAERS Safety Report 8763284 (Version 4)
Quarter: 2012Q4

REPORT INFORMATION
  Report Type: Report from Study
  Country: TW (occurrence: TW)
  Receive Date: 20120831
  Receipt Date: 20121207
  Transmission Date: 20130627
  Serious: Yes (Death, Hospitalization)
  Sender: FDA-Public Use
  Company Number: TW-GENZYME-CLOF-1002236

PATIENT
  Age: 8 Year
  Sex: Male
  Weight: 22.9 kg

DRUGS (3)
  1. EVOLTRA [Suspect]
     Indication: ACUTE LYMPHOCYTIC LEUKAEMIA RECURRENT
     Dosage: 20 mg/m2/day, for 5 days x 2 cycles
     Route: 042
     Dates: start: 20120614, end: 20120618
  2. ETOPOSIDE [Concomitant]
     Indication: PRODUCT USED FOR UNKNOWN INDICATION
     Dosage: 75 mg/m2, UNK
     Route: 065
  3. CYCLOPHOSPHAMIDE [Concomitant]
     Indication: PRODUCT USED FOR UNKNOWN INDICATION
     Dosage: 340 mg/m2, UNK
     Route: 065

REACTIONS (5)
  - Cardiopulmonary failure [Fatal]
  - Pleural effusion [Fatal]
  - Pancytopenia [Fatal]
  - Bronchopulmonary aspergillosis [Fatal]
  - Pericardial effusion [Fatal]
